FAERS Safety Report 9867763 (Version 1)
Quarter: 2014Q1

REPORT INFORMATION
  Report Type: Spontaneous
  Country: US (occurrence: US)
  Receive Date: 20140204
  Receipt Date: 20140204
  Transmission Date: 20141002
  Serious: Yes (Hospitalization)
  Sender: FDA-Public Use
  Company Number: PHHY2014US012191

PATIENT
  Age: 3 Year
  Sex: Female

DRUGS (4)
  1. METHYLPREDNISOLONE [Suspect]
     Indication: IMMUNE THROMBOCYTOPENIC PURPURA
     Dosage: 8 MG OR 0.5MG/KG WERE GIVEN
  2. IMMUNOGLOBULIN I.V [Suspect]
     Indication: IMMUNE THROMBOCYTOPENIC PURPURA
     Dosage: 1 G/KG, UNK
  3. DEXAMETHASONE [Suspect]
     Indication: STRIDOR
     Dosage: 4 DF, UNK
  4. DIPHENHYDRAMINE [Concomitant]
     Indication: PREMEDICATION
     Dosage: UNK UKN, UNK

REACTIONS (12)
  - Ischaemic cerebral infarction [Recovering/Resolving]
  - Headache [Recovering/Resolving]
  - Vomiting [Recovering/Resolving]
  - Lethargy [Recovering/Resolving]
  - Convulsion [Recovering/Resolving]
  - Somnolence [Recovering/Resolving]
  - Irritability [Recovering/Resolving]
  - Disorientation [Recovering/Resolving]
  - Encephalopathy [Recovering/Resolving]
  - Visual tracking test abnormal [Recovering/Resolving]
  - Von Willebrand^s factor antigen increased [Unknown]
  - Coagulation factor VIII level increased [Unknown]
